FAERS Safety Report 4994952-9 (Version None)
Quarter: 2006Q2

REPORT INFORMATION
  Report Type: 
  Country: None (occurrence: None)
  Receive Date: 20060501
  Receipt Date: 20060418
  Transmission Date: 20061013
  Serious: Yes (Hospitalization)
  Sender: FDA-Public Use
  Company Number: 2006BH008310

PATIENT
  Age: 7 Year
  Sex: Male
  Weight: 31 kg

DRUGS (5)
  1. POLYGAM S/D [Suspect]
     Indication: KAWASAKI'S DISEASE
     Dosage: 30 GM; IV;  31 GM; IV
     Route: 042
     Dates: start: 20060112
  2. POLYGAM S/D [Suspect]
     Indication: KAWASAKI'S DISEASE
     Dosage: 30 GM; IV;  31 GM; IV
     Route: 042
     Dates: start: 20060116
  3. REMICADE [Suspect]
     Indication: KAWASAKI'S DISEASE
     Dosage: 5 MG;/KG; IV
     Route: 042
     Dates: start: 20060120
  4. ASPIRIN [Suspect]
     Indication: KAWASAKI'S DISEASE
     Dosage: 650 MG; EVERY 6 HR
     Dates: start: 20060112
  5. ATARAX [Concomitant]

REACTIONS (2)
  - ANAEMIA [None]
  - PYREXIA [None]
